FAERS Safety Report 9786233 (Version 1)
Quarter: 2013Q4

REPORT INFORMATION
  Report Type: Spontaneous
  Country: FR (occurrence: None)
  Receive Date: 20131224
  Receipt Date: 20131224
  Transmission Date: 20140711
  Serious: Yes (Death)
  Sender: FDA-Public Use
  Company Number: UTC-042228

PATIENT
  Age: 63 Year
  Sex: 0

DRUGS (8)
  1. REMODULIN [Suspect]
     Indication: PULMONARY HYPERTENSION
     Dosage: 19.8 UG/KG (0.01375 UG/KG, 1 IN 1 MIN)
  2. MYCOPHENOLATE MOFETIL [Concomitant]
  3. BOSENTAN [Concomitant]
  4. SILDENAFIL [Concomitant]
  5. PREDNISOLONE [Concomitant]
  6. CYCLOPHOSPHAMIDE [Concomitant]
  7. MONOCLONAL ANTIBODIES [Concomitant]
  8. IMMUNOGLOBULIN [Concomitant]

REACTIONS (1)
  - Respiratory failure [None]
